FAERS Safety Report 14384323 (Version 1)
Quarter: 2018Q1

REPORT INFORMATION
  Report Type: Report from Study
  Country: US (occurrence: US)
  Receive Date: 20180115
  Receipt Date: 20180115
  Transmission Date: 20180509
  Serious: Yes (Hospitalization, Other)
  Sender: FDA-Public Use
  Company Number: US-BAYER-2017-185013

PATIENT
  Age: 81 Year
  Sex: Female

DRUGS (5)
  1. ADEMPAS [Suspect]
     Active Substance: RIOCIGUAT
     Indication: PULMONARY ARTERIAL HYPERTENSION
     Dosage: 1 MG, TID
     Route: 048
     Dates: start: 20170201
  2. VENTAVIS [Suspect]
     Active Substance: ILOPROST
     Dosage: UNK
  3. ADEMPAS [Suspect]
     Active Substance: RIOCIGUAT
     Indication: PULMONARY ARTERIAL HYPERTENSION
     Dosage: UNK
  4. ADEMPAS [Suspect]
     Active Substance: RIOCIGUAT
     Indication: PULMONARY ARTERIAL HYPERTENSION
     Dosage: 1 MG, TID
     Dates: start: 20160122
  5. ADEMPAS [Suspect]
     Active Substance: RIOCIGUAT
     Indication: PULMONARY ARTERIAL HYPERTENSION
     Dosage: 1 MG, TID
     Route: 048
     Dates: start: 20160123

REACTIONS (11)
  - Gout [None]
  - Throat cancer [Unknown]
  - Peripheral swelling [None]
  - Temporal arteritis [None]
  - Device malfunction [None]
  - Headache [None]
  - Neck pain [None]
  - Device failure [Recovered/Resolved]
  - Dyspnoea [None]
  - Hospitalisation [None]
  - Nasopharyngitis [Unknown]

NARRATIVE: CASE EVENT DATE: 201709
